FAERS Safety Report 16117311 (Version 1)
Quarter: 2019Q2

REPORT INFORMATION
  Report Type: Spontaneous
  Country: US (occurrence: US)
  Receive Date: 20190325
  Receipt Date: 20190325
  Transmission Date: 20190711
  Serious: Yes (Other)
  Sender: FDA-Public Use
  Company Number: None

PATIENT
  Age: 76 Year
  Sex: Female

DRUGS (1)
  1. TRIAMCINOLONE ACETONIDE/MOXIFLOXACIN [Suspect]
     Active Substance: MOXIFLOXACIN\TRIAMCINOLONE
     Indication: ANTIBIOTIC PROPHYLAXIS
     Dosage: ?          OTHER FREQUENCY:DURING SURGERY;?
     Route: 031
     Dates: start: 20190221, end: 20190221

REACTIONS (2)
  - Blindness [None]
  - Vasculitis [None]

NARRATIVE: CASE EVENT DATE: 20190304
